FAERS Safety Report 9665506 (Version 1)
Quarter: 2013Q4

REPORT INFORMATION
  Report Type: Spontaneous
  Country: US (occurrence: None)
  Receive Date: 20131031
  Receipt Date: 20131031
  Transmission Date: 20140711
  Serious: Yes (Hospitalization)
  Sender: FDA-Public Use
  Company Number: None

PATIENT
  Age: 49 Year
  Sex: Female
  Weight: 115 kg

DRUGS (1)
  1. MIDAZOLAM [Suspect]
     Indication: SEDATION
     Route: 042
     Dates: start: 20110830

REACTIONS (3)
  - Apnoea [None]
  - Dysphagia [None]
  - Procedural complication [None]
